FAERS Safety Report 10195093 (Version 2)
Quarter: 2014Q2

REPORT INFORMATION
  Report Type: Report from Study
  Country: CA (occurrence: CA)
  Receive Date: 20140526
  Receipt Date: 20140607
  Transmission Date: 20141212
  Serious: Yes (Death)
  Sender: FDA-Public Use
  Company Number: PHHY2014CA063396

PATIENT
  Age: 77 Year
  Sex: Male

DRUGS (11)
  1. CLOZARIL [Suspect]
     Dosage: 250 MG, QAM, 300 MG QHS
     Route: 048
     Dates: start: 20030717
  2. CLOZARIL [Suspect]
     Route: 048
     Dates: start: 20110626, end: 20140304
  3. VITAMIN B CO+B12 [Concomitant]
  4. LOSAC [Concomitant]
     Dosage: 20 MG, UNK
  5. SENOKOT                                 /UNK/ [Concomitant]
  6. LASIX [Concomitant]
     Dosage: 60 MG, UNK
  7. DOMPERIDONE [Concomitant]
     Dosage: 10 MG, TID
  8. VALPROIC ACID [Concomitant]
  9. LITHIUM [Concomitant]
  10. SYNTHROID [Concomitant]
  11. COLACE [Concomitant]

REACTIONS (1)
  - Death [Fatal]
